FAERS Safety Report 16367354 (Version 3)
Quarter: 2019Q3

REPORT INFORMATION
  Report Type: Spontaneous
  Country: US (occurrence: US)
  Receive Date: 20190529
  Receipt Date: 20190813
  Transmission Date: 20191004
  Serious: No
  Sender: FDA-Public Use
  Company Number: US-PFIZER INC-2019228132

PATIENT
  Age: 53 Year
  Sex: Female

DRUGS (1)
  1. ZOLOFT [Suspect]
     Active Substance: SERTRALINE HYDROCHLORIDE
     Dosage: UNK

REACTIONS (2)
  - Drug hypersensitivity [Unknown]
  - Emotional disorder [Unknown]
